FAERS Safety Report 5079982-3 (Version None)
Quarter: 2006Q3

REPORT INFORMATION
  Report Type: 
  Country: None (occurrence: None)
  Receive Date: 20060809
  Receipt Date: 20060724
  Transmission Date: 20061208
  Serious: Yes (Other)
  Sender: FDA-Public Use
  Company Number: 2006EU001931

PATIENT
  Age: 50 Year
  Sex: Male

DRUGS (1)
  1. PROTOPIC [Suspect]
     Indication: ECZEMA
     Dosage: 0.1%, UID/QD, TOPICAL
     Route: 061
     Dates: start: 20020901, end: 20060701

REACTIONS (1)
  - T-CELL LYMPHOMA [None]
